FAERS Safety Report 7733526-3 (Version None)
Quarter: 2011Q3

REPORT INFORMATION
  Report Type: 
  Country: None (occurrence: None)
  Receive Date: 20110907
  Receipt Date: 20110907
  Transmission Date: 20111222
  Serious: Yes (Other)
  Sender: FDA-Public Use
  Company Number: None

PATIENT
  Age: 55 Year
  Sex: Female
  Weight: 70.306 kg

DRUGS (2)
  1. DEPAKOTE [Suspect]
     Indication: CONVULSION
     Dates: start: 20080301, end: 20090831
  2. DEPAKOTE [Suspect]
     Indication: MIGRAINE
     Dates: start: 20080301, end: 20090831

REACTIONS (18)
  - GAIT DISTURBANCE [None]
  - FALL [None]
  - RENAL DISORDER [None]
  - DISTURBANCE IN ATTENTION [None]
  - LIVER DISORDER [None]
  - HEAD INJURY [None]
  - ASTHENIA [None]
  - APHASIA [None]
  - PARTIAL SEIZURES [None]
  - FLUID RETENTION [None]
  - PERIORBITAL HAEMATOMA [None]
  - HALLUCINATION [None]
  - SOMNOLENCE [None]
  - COORDINATION ABNORMAL [None]
  - ACTIVITIES OF DAILY LIVING IMPAIRED [None]
  - HEPATIC FAILURE [None]
  - DIARRHOEA [None]
  - BALANCE DISORDER [None]
